FAERS Safety Report 15892640 (Version 1)
Quarter: 2019Q1

REPORT INFORMATION
  Report Type: Report from Study
  Country: US (occurrence: US)
  Receive Date: 20190130
  Receipt Date: 20190130
  Transmission Date: 20190417
  Serious: No
  Sender: FDA-Public Use
  Company Number: US-EXELIXIS-CABO-18015744

PATIENT
  Sex: Male

DRUGS (4)
  1. NON-ASPIRIN [Concomitant]
     Active Substance: ACETAMINOPHEN
     Indication: PAIN
  2. CABOMETYX [Suspect]
     Active Substance: CABOZANTINIB S-MALATE
     Indication: RENAL CANCER
     Dosage: 40 MG, QD
     Route: 048
     Dates: start: 20180807
  3. NON-ASPIRIN [Concomitant]
     Active Substance: ACETAMINOPHEN
     Indication: PYREXIA
  4. LEVOTHYROXINE SODIUM. [Concomitant]
     Active Substance: LEVOTHYROXINE SODIUM

REACTIONS (6)
  - Genital infection fungal [Recovering/Resolving]
  - Dysphonia [Unknown]
  - Fatigue [Unknown]
  - Tongue discomfort [Unknown]
  - Oral pain [Unknown]
  - Diarrhoea [Unknown]

NARRATIVE: CASE EVENT DATE: 2018
